FAERS Safety Report 5709505-4 (Version None)
Quarter: 2008Q2

REPORT INFORMATION
  Report Type: 
  Country: None (occurrence: None)
  Receive Date: 20080417
  Receipt Date: 20080417
  Transmission Date: 20081010
  Serious: Yes (Other)
  Sender: FDA-Public Use
  Company Number: None

PATIENT
  Age: 55 Year
  Sex: Female
  Weight: 77.1115 kg

DRUGS (1)
  1. AMITRIPTLINE HCL [Suspect]
     Indication: FIBROMYALGIA
     Dosage: ONE 75 MG TAB ONCE/24 HR MOUTH
     Route: 048
     Dates: start: 20070507, end: 20070610

REACTIONS (2)
  - INSOMNIA [None]
  - PHARMACEUTICAL PRODUCT COMPLAINT [None]
